FAERS Safety Report 4979318-X (Version None)
Quarter: 2006Q2

REPORT INFORMATION
  Report Type: 
  Country: None (occurrence: None)
  Receive Date: 20060421
  Receipt Date: 20050414
  Transmission Date: 20061013
  Serious: Yes (Hospitalization, Disabling)
  Sender: FDA-Public Use
  Company Number: US-MERCK-0504USA02441

PATIENT
  Age: 54 Year
  Sex: Female
  Weight: 130 kg

DRUGS (1)
  1. VIOXX [Suspect]
     Indication: OSTEOARTHRITIS
     Route: 048
     Dates: start: 20020325, end: 20020904

REACTIONS (12)
  - ARTHROPATHY [None]
  - BONE DISORDER [None]
  - DIABETES MELLITUS [None]
  - DRUG HYPERSENSITIVITY [None]
  - FOOT DEFORMITY [None]
  - HYPERCHOLESTEROLAEMIA [None]
  - HYPOTENSION [None]
  - MYOCARDIAL INFARCTION [None]
  - NERVOUS SYSTEM DISORDER [None]
  - SHOCK [None]
  - SKIN PAPILLOMA [None]
  - TOE DEFORMITY [None]
